FAERS Safety Report 7240394-5 (Version None)
Quarter: 2011Q1

REPORT INFORMATION
  Report Type: 
  Country: None (occurrence: None)
  Receive Date: 20110119
  Receipt Date: 20110119
  Transmission Date: 20110831
  Serious: Yes (Other)
  Sender: FDA-Public Use
  Company Number: None

PATIENT
  Sex: Female
  Weight: 88.905 kg

DRUGS (4)
  1. LEXAPRO [Suspect]
     Indication: ANXIETY
     Dosage: 10 MG DAILY PO
     Route: 048
  2. LEXAPRO [Suspect]
     Indication: PANIC DISORDER
     Dosage: 10 MG DAILY PO
     Route: 048
  3. LEXAPRO [Suspect]
     Indication: DEPRESSION
     Dosage: 10 MG DAILY PO
     Route: 048
  4. LEXAPRO [Suspect]
     Indication: FIBROMYALGIA
     Dosage: 10 MG DAILY PO
     Route: 048

REACTIONS (4)
  - ANXIETY [None]
  - DEPRESSION [None]
  - NIGHTMARE [None]
  - WITHDRAWAL SYNDROME [None]
